FAERS Safety Report 9779114 (Version 1)
Quarter: 2013Q4

REPORT INFORMATION
  Report Type: Spontaneous
  Country: US (occurrence: US)
  Receive Date: 20131223
  Receipt Date: 20131223
  Transmission Date: 20140711
  Serious: No
  Sender: FDA-Public Use
  Company Number: US-ENDO PHARMACEUTICALS INC.-OPCR20130392

PATIENT
  Sex: Female

DRUGS (2)
  1. OPANA ER 20MG [Suspect]
     Indication: MIGRAINE
     Route: 048
     Dates: start: 201302
  2. OPANA ER 20MG [Suspect]
     Indication: PAIN

REACTIONS (2)
  - Vomiting [Not Recovered/Not Resolved]
  - Drug ineffective [Not Recovered/Not Resolved]
